FAERS Safety Report 10151272 (Version 2)
Quarter: 2014Q2

REPORT INFORMATION
  Report Type: Spontaneous
  Country: FR (occurrence: FR)
  Receive Date: 20140503
  Receipt Date: 20140602
  Transmission Date: 20141212
  Serious: Yes (Hospitalization, Other)
  Sender: FDA-Public Use
  Company Number: PHHY2014FR051205

PATIENT
  Sex: Female
  Weight: 59 kg

DRUGS (7)
  1. AFINITOR [Suspect]
     Indication: PANCREATIC NEUROENDOCRINE TUMOUR
     Dosage: 10 MG, QD
     Route: 048
     Dates: start: 20130926, end: 201404
  2. SUTENT [Suspect]
     Indication: PANCREATIC NEUROENDOCRINE TUMOUR
     Dosage: 37.5 MG, DAILY
     Route: 048
     Dates: start: 201111, end: 201202
  3. STILNOX [Concomitant]
  4. TOPALGIC//TRAMADOL HYDROCHLORIDE [Concomitant]
  5. LEVOTHYROX [Concomitant]
  6. STAGID [Concomitant]
  7. PRACTAZIN [Concomitant]

REACTIONS (4)
  - Disseminated intravascular coagulation [Recovering/Resolving]
  - Platelet count decreased [Not Recovered/Not Resolved]
  - Epistaxis [Unknown]
  - Spontaneous haematoma [Unknown]
